FAERS Safety Report 26116979 (Version 1)
Quarter: 2025Q4

REPORT INFORMATION
  Report Type: Spontaneous
  Country: US (occurrence: None)
  Receive Date: 20251202
  Receipt Date: 20251202
  Transmission Date: 20260118
  Serious: Yes (Other)
  Sender: FDA-CTU
  Company Number: None

PATIENT
  Age: 37 Year
  Sex: Female
  Weight: 117 kg

DRUGS (2)
  1. FERAHEME [Suspect]
     Active Substance: FERUMOXYTOL NON-STOICHIOMETRIC MAGNETITE
     Indication: Microcytic anaemia
     Dosage: 510 MG ONCE INTRAVENOUS
     Route: 042
     Dates: start: 20251201, end: 20251201
  2. ferrous sulfate 325 mg PO daily [Concomitant]

REACTIONS (4)
  - Muscle spasms [None]
  - Chest pain [None]
  - Dyspnoea [None]
  - Infusion related reaction [None]

NARRATIVE: CASE EVENT DATE: 20251201
